FAERS Safety Report 4482195-7 (Version None)
Quarter: 2004Q4

REPORT INFORMATION
  Report Type: 
  Country: None (occurrence: None)
  Receive Date: 20041020
  Receipt Date: 20041007
  Transmission Date: 20050328
  Serious: Yes (Hospitalization)
  Sender: FDA-Public Use
  Company Number: 2004076910

PATIENT
  Age: 72 Year
  Sex: Female

DRUGS (3)
  1. SULPERAZON (CEFOPERAZONE, SULBACTAM) [Suspect]
     Indication: ILL-DEFINED DISORDER
     Dosage: 1 GRAM (1 D), INTRAVENOUS
     Route: 042
     Dates: start: 20040928, end: 20040930
  2. FAMOTIDINE [Suspect]
     Indication: ILL-DEFINED DISORDER
     Dosage: ORAL
     Route: 048
     Dates: start: 20040928, end: 20040930
  3. ALPROSTADIL [Suspect]
     Indication: ILL-DEFINED DISORDER
     Dates: start: 20040928, end: 20040930

REACTIONS (3)
  - EOSINOPHIL PERCENTAGE INCREASED [None]
  - HEPATITIS [None]
  - WHITE BLOOD CELL COUNT INCREASED [None]
